FAERS Safety Report 5979532-0 (Version None)
Quarter: 2008Q4

REPORT INFORMATION
  Report Type: 
  Country: None (occurrence: None)
  Receive Date: 20081128
  Receipt Date: 20081114
  Transmission Date: 20090506
  Serious: Yes (Other)
  Sender: FDA-Public Use
  Company Number: GXKR2008GB10961

PATIENT
  Age: 65 Year
  Sex: Male
  Weight: 100 kg

DRUGS (11)
  1. SIMVASTATIN [Suspect]
     Indication: CARDIOVASCULAR EVENT PROPHYLAXIS
     Dosage: 40 MG, OD, ORAL
     Route: 048
     Dates: start: 20080627, end: 20081105
  2. AMOXICILLIN [Concomitant]
  3. ASPIRIN [Concomitant]
  4. BENDROFLUMETHIAZIDE (BENDROFLUMETHIAZIDE) [Concomitant]
  5. CO-DYDRAMOL (DIHYDROCODEINE BITARTRATE, PARACETAMOL) [Suspect]
  6. CORTISONE (CORTISONE) [Concomitant]
  7. ETANERCEPT (ETANERCEPT) [Concomitant]
  8. FOLIC ACID [Concomitant]
  9. INDOMETHACIN [Concomitant]
  10. LANSOPRAZOLE [Concomitant]
  11. METHOTREXATE [Concomitant]

REACTIONS (1)
  - TENDON RUPTURE [None]
